FAERS Safety Report 15576099 (Version 1)
Quarter: 2018Q4

REPORT INFORMATION
  Report Type: Spontaneous
  Country: US (occurrence: US)
  Receive Date: 20181101
  Receipt Date: 20181101
  Transmission Date: 20190205
  Serious: No
  Sender: FDA-Public Use
  Company Number: US-PFIZER INC-2018431491

PATIENT
  Age: 58 Year
  Sex: Female

DRUGS (1)
  1. TAPAZOLE [Suspect]
     Active Substance: METHIMAZOLE
     Dosage: UNK

REACTIONS (4)
  - Pain in extremity [Unknown]
  - Psychotic disorder [Unknown]
  - Abnormal behaviour [Unknown]
  - Pain [Unknown]
